FAERS Safety Report 19480268 (Version 2)
Quarter: 2022Q4

REPORT INFORMATION
  Report Type: Report from Study
  Country: JP (occurrence: JP)
  Receive Date: 20210701
  Receipt Date: 20221101
  Transmission Date: 20230113
  Serious: No
  Sender: FDA-Public Use
  Company Number: JP-ALXN-A202105792AA

PATIENT
  Age: 75 Year
  Sex: Male
  Weight: 63 kg

DRUGS (2)
  1. ULTOMIRIS [Suspect]
     Active Substance: RAVULIZUMAB-CWVZ
     Indication: Paroxysmal nocturnal haemoglobinuria
     Dosage: 3300 MG, Q56
     Route: 042
     Dates: start: 20191209
  2. PREDNISOLONE [Concomitant]
     Active Substance: PREDNISOLONE
     Indication: Paroxysmal nocturnal haemoglobinuria
     Dosage: 1 MG, QD
     Route: 048
     Dates: start: 20190520

REACTIONS (1)
  - Therapeutic product effect decreased [Unknown]

NARRATIVE: CASE EVENT DATE: 20200101
